FAERS Safety Report 9660571 (Version 1)
Quarter: 2013Q4

REPORT INFORMATION
  Report Type: Spontaneous
  Country: FR (occurrence: FR)
  Receive Date: 20131031
  Receipt Date: 20131031
  Transmission Date: 20140711
  Serious: Yes (Other)
  Sender: FDA-Public Use
  Company Number: FR-PFIZER INC-2013307037

PATIENT
  Age: 50 Year
  Sex: Male

DRUGS (1)
  1. CRIZOTINIB [Suspect]
     Dosage: 250 MG, 2X/DAY
     Dates: start: 201310

REACTIONS (1)
  - Renal failure acute [Unknown]
